FAERS Safety Report 10529844 (Version 2)
Quarter: 2014Q4

REPORT INFORMATION
  Report Type: Spontaneous
  Country: GR (occurrence: GR)
  Receive Date: 20141021
  Receipt Date: 20141202
  Transmission Date: 20150528
  Serious: Yes (Hospitalization)
  Sender: FDA-Public Use
  Company Number: GR-SHIRE-GR201406783

PATIENT
  Age: 78 Year
  Sex: Male

DRUGS (7)
  1. LOPRESSOR [Concomitant]
     Active Substance: METOPROLOL TARTRATE
     Indication: HYPERTENSION
     Dosage: UNK, UNKNOWN
     Route: 048
  2. BRILIQUE [Concomitant]
     Active Substance: TICAGRELOR
     Indication: CORONARY ARTERY DISEASE
     Dosage: UNK, UNKNOWN
     Route: 048
  3. XAGRID [Suspect]
     Active Substance: ANAGRELIDE HYDROCHLORIDE
     Indication: ESSENTIAL THROMBOCYTHAEMIA
     Dosage: 0.5 MG, OTHER (REST OF DAYS 2 X 2 OF XAGRID)
     Route: 048
     Dates: start: 201404, end: 20140911
  4. XAGRID [Suspect]
     Active Substance: ANAGRELIDE HYDROCHLORIDE
     Dosage: 0.5 MG, UNKNOWN
     Route: 048
     Dates: start: 201402, end: 201404
  5. ANTORCIN [Concomitant]
     Indication: HYPERCHOLESTEROLAEMIA
     Dosage: UNK, UNKNOWN
     Route: 048
  6. HYDROXYUREA. [Concomitant]
     Active Substance: HYDROXYUREA
     Indication: ESSENTIAL THROMBOCYTHAEMIA
     Dosage: UNK, OTHER (TWICE PER WEEK 1 X 1)
     Route: 065
     Dates: start: 201401
  7. SALOSPIR [Concomitant]
     Active Substance: ASPIRIN\CAFFEINE
     Indication: CORONARY ARTERY DISEASE
     Dosage: UNK, UNKNOWN
     Route: 048

REACTIONS (4)
  - Blood creatinine increased [Recovering/Resolving]
  - Dysuria [Recovered/Resolved]
  - Inappropriate schedule of drug administration [Recovered/Resolved]
  - Pyrexia [Recovered/Resolved]

NARRATIVE: CASE EVENT DATE: 201402
